FAERS Safety Report 11101272 (Version 2)
Quarter: 2015Q3

REPORT INFORMATION
  Report Type: Report from Study
  Country: US (occurrence: US)
  Receive Date: 20150508
  Receipt Date: 20150818
  Transmission Date: 20151125
  Serious: Yes (Hospitalization, Other)
  Sender: FDA-Public Use
  Company Number: US-GILEAD-2015-0152523

PATIENT
  Age: 43 Year
  Sex: Female

DRUGS (2)
  1. AMBRISENTAN [Suspect]
     Active Substance: AMBRISENTAN
     Indication: PULMONARY ARTERIAL HYPERTENSION
     Dosage: 10 MG, QD
     Route: 065
     Dates: start: 20130619
  2. AMBRISENTAN [Suspect]
     Active Substance: AMBRISENTAN
     Indication: SYSTEMIC SCLEROSIS

REACTIONS (2)
  - Pneumonia viral [Not Recovered/Not Resolved]
  - Inflammation [Unknown]

NARRATIVE: CASE EVENT DATE: 20150430
